FAERS Safety Report 4311577-9 (Version None)
Quarter: 2004Q1

REPORT INFORMATION
  Report Type: 
  Country: None (occurrence: None)
  Receive Date: 20040303
  Receipt Date: 20040303
  Transmission Date: 20041129
  Serious: Yes (Death, Hospitalization)
  Sender: FDA-Public Use
  Company Number: None

PATIENT
  Age: 61 Year
  Sex: Male
  Weight: 94 kg

DRUGS (15)
  1. WARFARIN SODIUM [Suspect]
     Indication: ATRIAL FIBRILLATION
     Dosage: 5 MG DAILY ORAL
     Route: 048
  2. WARFARIN SODIUM [Suspect]
     Indication: MITRAL VALVE REPLACEMENT
     Dosage: 5 MG DAILY ORAL
     Route: 048
  3. ALLOPURINOL [Concomitant]
  4. COLCHICINE [Concomitant]
  5. PLAVIX [Concomitant]
  6. PERCOCET [Concomitant]
  7. ASPIRIN [Concomitant]
  8. VITAMIN E [Concomitant]
  9. TRIMETHAPRIM [Concomitant]
  10. SIMVASTATIN [Concomitant]
  11. RANITIDINE [Concomitant]
  12. FOSINOPRIL SODIUM [Concomitant]
  13. GABAPENTIN [Concomitant]
  14. TORSEMIDE [Concomitant]
  15. DOCUSATE [Concomitant]

REACTIONS (5)
  - CEREBRAL HAEMORRHAGE [None]
  - COMA [None]
  - DYSKINESIA [None]
  - HEADACHE [None]
  - INTERNATIONAL NORMALISED RATIO INCREASED [None]
